FAERS Safety Report 6147274-7 (Version None)
Quarter: 2009Q2

REPORT INFORMATION
  Report Type: 
  Country: None (occurrence: None)
  Receive Date: 20090408
  Receipt Date: 20090402
  Transmission Date: 20091009
  Serious: Yes (Hospitalization)
  Sender: FDA-Public Use
  Company Number: FR-JNJFOC-20090400907

PATIENT
  Sex: Female

DRUGS (8)
  1. TAVANIC [Suspect]
     Indication: LUNG DISORDER
     Route: 048
  2. TRAMADOL HCL [Suspect]
     Indication: LUNG DISORDER
     Dosage: 100 MG SUSTAINED RELEASE TABLET
     Route: 048
  3. LOVENOX [Concomitant]
     Dosage: 4000 UI ANTI-XA/0.4 ML SOLUTION
     Route: 058
  4. AMLODIPINE BESYLATE [Concomitant]
     Dosage: 10 MG CAPSULES
     Route: 048
  5. NITRODERM [Concomitant]
     Dosage: 10 MG/24 HOURS TRANSDERMIC DISPOSITIVE (TRINITRINE)
     Route: 003
  6. TEMESTA [Concomitant]
     Dosage: 1 MG SCORED TABLETS
     Route: 048
  7. LASIX [Concomitant]
     Dosage: 20 MG TABLET
     Route: 048
  8. RISORDAN [Concomitant]
     Dosage: 20 MG TABLET
     Route: 048

REACTIONS (2)
  - LYMPHOPENIA [None]
  - NEUTROPENIA [None]
